FAERS Safety Report 9056923 (Version 1)
Quarter: 2013Q1

REPORT INFORMATION
  Report Type: Report from Study
  Country: US (occurrence: US)
  Receive Date: 20130131
  Receipt Date: 20130131
  Transmission Date: 20140127
  Serious: No
  Sender: FDA-Public Use
  Company Number: US-ABBOTT-12P-163-0991088-00

PATIENT
  Age: 27 Year
  Sex: Female

DRUGS (4)
  1. HUMIRA [Suspect]
     Indication: CROHN^S DISEASE
     Dates: start: 201206, end: 20121001
  2. SEROQUEL [Concomitant]
     Indication: SLEEP DISORDER THERAPY
     Dosage: 400MG DAILY
  3. AMITRIPTYLINE [Concomitant]
     Indication: PAIN
     Dosage: 25MG DAILY
  4. AMITRIPTYLINE [Concomitant]
     Indication: CROHN^S DISEASE

REACTIONS (3)
  - Crohn^s disease [Recovering/Resolving]
  - Vomiting [Recovering/Resolving]
  - Dehydration [Unknown]
